FAERS Safety Report 18544316 (Version 2)
Quarter: 2020Q4

REPORT INFORMATION
  Report Type: Spontaneous
  Country: US (occurrence: US)
  Receive Date: 20201125
  Receipt Date: 20201126
  Transmission Date: 20210114
  Serious: No
  Sender: FDA-Public Use
  Company Number: US-SA-2020SA329967

PATIENT

DRUGS (1)
  1. LANTUS [Suspect]
     Active Substance: INSULIN GLARGINE
     Indication: TYPE 2 DIABETES MELLITUS
     Dosage: 27 IU, QD
     Route: 065
     Dates: start: 20201015

REACTIONS (3)
  - Vomiting [Unknown]
  - Dizziness [Unknown]
  - Hyperphagia [Unknown]

NARRATIVE: CASE EVENT DATE: 2020
